FAERS Safety Report 5523143-8 (Version None)
Quarter: 2007Q4

REPORT INFORMATION
  Report Type: 
  Country: None (occurrence: None)
  Receive Date: 20071119
  Receipt Date: 20071023
  Transmission Date: 20080405
  Serious: Yes (Other)
  Sender: FDA-Public Use
  Company Number: 062-21880-07091286

PATIENT
  Age: 65 Year
  Sex: Male
  Weight: 60 kg

DRUGS (10)
  1. REVLIMID [Suspect]
     Indication: DRUG USE FOR UNKNOWN INDICATION
     Dosage: 25 MG, DAILY, ORAL; 15 MG, DAILY, ORAL
     Route: 048
     Dates: start: 20070625, end: 20070914
  2. REVLIMID [Suspect]
     Indication: DRUG USE FOR UNKNOWN INDICATION
     Dosage: 25 MG, DAILY, ORAL; 15 MG, DAILY, ORAL
     Route: 048
     Dates: start: 20070914, end: 20070929
  3. NEULASTA (PEGFILGRASTIM) (SOLUTION) [Concomitant]
  4. OCTAGAM [Concomitant]
  5. AVALOX (MOXIFLOXACIN HYDROCHLORIDE) (TABLETS) [Concomitant]
  6. GAMUNEX [Concomitant]
  7. ERTHROCYTES CONCENTRATE (RED BLOOD CELLS, CONCENTRATED) [Concomitant]
  8. THROMBOCYTES CONCENTRATE (PLATELETS, CONCENTRATED) [Concomitant]
  9. ARANESP [Concomitant]
  10. DEXAMETHASONE TAB [Concomitant]

REACTIONS (10)
  - BLINDNESS [None]
  - GASTROENTERITIS [None]
  - GENERAL PHYSICAL HEALTH DETERIORATION [None]
  - HAEMATOTOXICITY [None]
  - RASH [None]
  - RETINAL VEIN OCCLUSION [None]
  - RETINAL VEIN THROMBOSIS [None]
  - SKIN HAEMORRHAGE [None]
  - UPPER RESPIRATORY TRACT INFECTION [None]
  - WEIGHT DECREASED [None]
